FAERS Safety Report 20521053 (Version 2)
Quarter: 2022Q3

REPORT INFORMATION
  Report Type: Spontaneous
  Country: US (occurrence: None)
  Receive Date: 20220225
  Receipt Date: 20220813
  Transmission Date: 20221027
  Serious: Yes (Other)
  Sender: FDA-Public Use
  Company Number: 2022A077999

PATIENT
  Age: 67 Year
  Sex: Female
  Weight: 65.8 kg

DRUGS (59)
  1. NEXIUM [Suspect]
     Active Substance: ESOMEPRAZOLE MAGNESIUM
     Indication: Gastrooesophageal reflux disease
     Route: 048
     Dates: start: 2001, end: 2018
  2. PRILOSEC [Suspect]
     Active Substance: OMEPRAZOLE MAGNESIUM
     Indication: Gastrooesophageal reflux disease
     Route: 048
     Dates: start: 2001, end: 2018
  3. DEXILANT [Suspect]
     Active Substance: DEXLANSOPRAZOLE
     Indication: Gastrooesophageal reflux disease
     Route: 065
     Dates: start: 2001, end: 2018
  4. DEXILANT [Suspect]
     Active Substance: DEXLANSOPRAZOLE
     Indication: Gastrooesophageal reflux disease
     Route: 065
     Dates: start: 2009, end: 2018
  5. PREVACID 24 HR [Suspect]
     Active Substance: LANSOPRAZOLE
     Indication: Gastrooesophageal reflux disease
     Route: 065
     Dates: start: 2013, end: 2017
  6. PROTONIX [Suspect]
     Active Substance: PANTOPRAZOLE SODIUM
     Indication: Gastrooesophageal reflux disease
     Route: 065
     Dates: start: 2001, end: 2018
  7. PROTONIX [Suspect]
     Active Substance: PANTOPRAZOLE SODIUM
     Indication: Gastrooesophageal reflux disease
     Dosage: GENERIC
     Route: 065
     Dates: start: 2015
  8. PRIMIDONE [Concomitant]
     Active Substance: PRIMIDONE
  9. NASTURTIUM OFFICINALE/SODIUM SULFATE/MYOSOTIS ARVENSIS/GERANIUM ROBERT [Concomitant]
  10. SIMVASTATIN [Concomitant]
     Active Substance: SIMVASTATIN
     Indication: Cardiac disorder
     Dates: start: 2011, end: 2013
  11. TOPIRAMATE [Concomitant]
     Active Substance: TOPIRAMATE
  12. RISPERIDONE [Concomitant]
     Active Substance: RISPERIDONE
  13. TIZANIDINE [Concomitant]
     Active Substance: TIZANIDINE
  14. NITROFURANTOIN [Concomitant]
     Active Substance: NITROFURANTOIN
  15. BUPROPION [Concomitant]
     Active Substance: BUPROPION
  16. LAMOTRIGINE [Concomitant]
     Active Substance: LAMOTRIGINE
  17. TAURINE/AMINOCAPROIC ACID/SULFAMETHOXAZOLE SODIUM/DIPOTASSIUM GLYCYRRH [Concomitant]
  18. VITAMIN D [Concomitant]
     Active Substance: VITAMIN D NOS
  19. RANITIDINE [Concomitant]
     Active Substance: RANITIDINE
  20. METHOCARBAMOL [Concomitant]
     Active Substance: METHOCARBAMOL
  21. QUETIAPINE [Concomitant]
     Active Substance: QUETIAPINE
  22. CYCLOBENZAPRINE [Concomitant]
     Active Substance: CYCLOBENZAPRINE
  23. SUCRALFATE [Concomitant]
     Active Substance: SUCRALFATE
  24. FLUCONAZOLE [Concomitant]
     Active Substance: FLUCONAZOLE
  25. MECLIZINE [Concomitant]
     Active Substance: MECLIZINE HYDROCHLORIDE
  26. WELCHOL [Concomitant]
     Active Substance: COLESEVELAM HYDROCHLORIDE
  27. ESCITALOPRAM [Concomitant]
     Active Substance: ESCITALOPRAM OXALATE
  28. CLOPIDOGREL [Concomitant]
     Active Substance: CLOPIDOGREL BISULFATE
     Indication: Cardiac disorder
     Dates: start: 2015, end: 2020
  29. OFLOXACIN [Concomitant]
     Active Substance: OFLOXACIN
  30. PROAIR HFA [Concomitant]
     Active Substance: ALBUTEROL SULFATE
  31. NYSTATIN [Concomitant]
     Active Substance: NYSTATIN
  32. HYDROCODONE [Concomitant]
     Active Substance: HYDROCODONE
  33. FOLIC ACID [Concomitant]
     Active Substance: FOLIC ACID
  34. VACCINIUM MACROCARPON FRUIT/BACILLUS COAGULANS/CALCIUM PHOSPHATE/ASCOR [Concomitant]
  35. TRILEPTAL [Concomitant]
     Active Substance: OXCARBAZEPINE
  36. HYOSCYAMINE [Concomitant]
     Active Substance: HYOSCYAMINE
  37. ALBUTEROL [Concomitant]
     Active Substance: ALBUTEROL
  38. TEGRETOL [Concomitant]
     Active Substance: CARBAMAZEPINE
  39. AVELOX [Concomitant]
     Active Substance: MOXIFLOXACIN HYDROCHLORIDE
  40. ROSUVASTATIN [Concomitant]
     Active Substance: ROSUVASTATIN
     Indication: Cardiac disorder
     Dates: start: 202003
  41. LIPITOR [Concomitant]
     Active Substance: ATORVASTATIN CALCIUM
  42. HYDROCHLOROTHIAZIDE [Concomitant]
     Active Substance: HYDROCHLOROTHIAZIDE
  43. PROZAC [Concomitant]
     Active Substance: FLUOXETINE HYDROCHLORIDE
  44. SONATA [Concomitant]
     Active Substance: ZALEPLON
  45. CLARINEX [Concomitant]
     Active Substance: DESLORATADINE
  46. LORATADINE [Concomitant]
     Active Substance: LORATADINE
  47. EFFEXOR [Concomitant]
     Active Substance: VENLAFAXINE HYDROCHLORIDE
  48. MIRALAX [Concomitant]
     Active Substance: POLYETHYLENE GLYCOL 3350
  49. AMBIEN [Concomitant]
     Active Substance: ZOLPIDEM TARTRATE
  50. IPRATROPIUM [Concomitant]
     Active Substance: IPRATROPIUM
  51. KETOROLAC [Concomitant]
     Active Substance: KETOROLAC TROMETHAMINE
     Indication: Pain
     Dates: start: 201510
  52. MELOXICAM [Concomitant]
     Active Substance: MELOXICAM
     Indication: Pain
     Dates: start: 201311
  53. NAPROXEN [Concomitant]
     Active Substance: NAPROXEN
     Indication: Pain
     Dates: start: 200411
  54. AMOXICILLIN [Concomitant]
     Active Substance: AMOXICILLIN
     Indication: Infection
     Dates: start: 201512
  55. AZITHROMYCIN [Concomitant]
     Active Substance: AZITHROMYCIN
     Indication: Infection
     Dates: start: 201711
  56. CIPROFLOXACIN [Concomitant]
     Active Substance: CIPROFLOXACIN
     Indication: Infection
     Dates: start: 201110
  57. GENTAMICIN [Concomitant]
     Active Substance: GENTAMICIN
     Indication: Infection
     Dates: start: 201803
  58. ACETAMINOPHEN [Concomitant]
     Active Substance: ACETAMINOPHEN
     Indication: Pain
  59. BENADRYL [Concomitant]
     Active Substance: DIPHENHYDRAMINE HYDROCHLORIDE
     Indication: Multiple allergies

REACTIONS (2)
  - Chronic kidney disease [Not Recovered/Not Resolved]
  - Gastrooesophageal reflux disease [Not Recovered/Not Resolved]

NARRATIVE: CASE EVENT DATE: 20170101
